FAERS Safety Report 7084643-5 (Version None)
Quarter: 2010Q4

REPORT INFORMATION
  Report Type: 
  Country: None (occurrence: None)
  Receive Date: 20101104
  Receipt Date: 20101028
  Transmission Date: 20110411
  Serious: Yes (Hospitalization)
  Sender: FDA-Public Use
  Company Number: PHHO2010DE15682

PATIENT
  Sex: Male
  Weight: 76 kg

DRUGS (2)
  1. TASIGNA [Suspect]
     Indication: CHRONIC MYELOID LEUKAEMIA
     Dosage: 600 MG
     Route: 048
     Dates: start: 20080807
  2. ALCOHOL [Suspect]

REACTIONS (1)
  - ALCOHOL POISONING [None]
